FAERS Safety Report 9281533 (Version 1)
Quarter: 2013Q2

REPORT INFORMATION
  Report Type: Spontaneous
  Country: IT (occurrence: IT)
  Receive Date: 20130509
  Receipt Date: 20130509
  Transmission Date: 20140414
  Serious: Yes (Life-Threatening, Hospitalization, Other)
  Sender: FDA-Public Use
  Company Number: IT-BAYER-2013-056353

PATIENT
  Age: 34 Year
  Sex: Female

DRUGS (6)
  1. CABERGOLINE [Suspect]
     Indication: LACTATION INHIBITION THERAPY
     Dosage: 1 MG, UNK
  2. KETOROLAC [Suspect]
     Indication: HEADACHE
     Route: 048
  3. ACETYLSALICYLIC ACID (} 100 MG, FAST RELEASE) [Suspect]
  4. BUDESONIDE [Concomitant]
     Indication: ASTHMA
     Dosage: DAILY DOSE 800 ?G
     Route: 055
  5. BUDESONIDE [Concomitant]
     Indication: ASTHMA
     Dosage: DAILY DOSE 1600 ?G
     Route: 055
  6. FORMOTEROL [Concomitant]
     Indication: ASTHMA
     Dosage: DAILY DOSE 24 ?G
     Route: 055

REACTIONS (7)
  - Drug hypersensitivity [Unknown]
  - Kounis syndrome [Recovered/Resolved with Sequelae]
  - Cardiogenic shock [Recovered/Resolved]
  - Pulmonary oedema [None]
  - Ventricular fibrillation [Recovered/Resolved]
  - Cardiac arrest [Recovered/Resolved]
  - Anaphylactic shock [Recovered/Resolved]
